FAERS Safety Report 12356248 (Version 1)
Quarter: 2016Q2

REPORT INFORMATION
  Report Type: Spontaneous
  Country: US (occurrence: US)
  Receive Date: 20160511
  Receipt Date: 20160511
  Transmission Date: 20160815
  Serious: Yes (Other)
  Sender: FDA-Public Use
  Company Number: US-BIOGEN-2016BI00235716

PATIENT
  Sex: Male

DRUGS (2)
  1. TYSABRI [Suspect]
     Active Substance: NATALIZUMAB
     Indication: MULTIPLE SCLEROSIS
     Dosage: INFUSED OVER 1 HOUR
     Route: 042
     Dates: start: 20070503, end: 20100601
  2. TYSABRI [Suspect]
     Active Substance: NATALIZUMAB
     Route: 065
     Dates: start: 20120515, end: 201601

REACTIONS (2)
  - Renal failure [Not Recovered/Not Resolved]
  - Multi-organ disorder [Not Recovered/Not Resolved]
